FAERS Safety Report 23465476 (Version 10)
Quarter: 2025Q4

REPORT INFORMATION
  Report Type: Report from Study
  Country: EU (occurrence: EU)
  Receive Date: 20240201
  Receipt Date: 20251210
  Transmission Date: 20260118
  Serious: Yes (Hospitalization, Other)
  Sender: TAKEDA
  Company Number: EU-TAKEDA-2024TUS008124

PATIENT
  Age: 60 Year
  Sex: Male

DRUGS (18)
  1. TEDUGLUTIDE [Suspect]
     Active Substance: TEDUGLUTIDE
     Indication: Short-bowel syndrome
     Dosage: 3.16 MILLIGRAM, QD
     Dates: start: 20181023
  2. TEDUGLUTIDE [Suspect]
     Active Substance: TEDUGLUTIDE
  3. TEDUGLUTIDE [Suspect]
     Active Substance: TEDUGLUTIDE
  4. TEDUGLUTIDE [Suspect]
     Active Substance: TEDUGLUTIDE
  5. LOPERAMIDE [Concomitant]
     Active Substance: LOPERAMIDE
     Indication: Illness
     Dosage: 6 MILLIGRAM, TID
     Dates: start: 201701
  6. HALDOL [Concomitant]
     Active Substance: HALOPERIDOL
     Indication: Mental disorder
     Dosage: 2 MILLIGRAM, BID
     Dates: start: 201701
  7. OXAZEPAM [Concomitant]
     Active Substance: OXAZEPAM
     Indication: Mental disorder
     Dosage: 20 MILLIGRAM, TID
     Dates: start: 201701
  8. MIANSERIN HYDROCHLORIDE [Concomitant]
     Active Substance: MIANSERIN HYDROCHLORIDE
     Indication: Mental disorder
     Dosage: 60 MILLIGRAM, QD
     Dates: start: 201701
  9. CHOLECALCIFEROL [Concomitant]
     Active Substance: CHOLECALCIFEROL
     Indication: Osteoporosis
     Dosage: 200000 INTERNATIONAL UNIT, 1/WEEK
     Dates: start: 201811
  10. PANTOPRAZOLE [Concomitant]
     Active Substance: PANTOPRAZOLE
     Indication: Illness
     Dosage: 40 MILLIGRAM
  11. INNOHEP [Concomitant]
     Active Substance: TINZAPARIN SODIUM
     Indication: Product used for unknown indication
     Dosage: 0.5 MILLILITER, QD
     Dates: start: 201809, end: 20250110
  12. IMOVANE [Concomitant]
     Active Substance: ZOPICLONE
     Indication: Mental disorder
     Dosage: 3.75 MILLIGRAM, QD
     Dates: start: 201809
  13. VITAMIN E [Concomitant]
     Active Substance: .ALPHA.-TOCOPHEROL
     Indication: Vitamin supplementation
     Dosage: 500 MILLIGRAM, QD
     Dates: start: 201911
  14. VITAMIN K [Concomitant]
     Active Substance: PHYTONADIONE
     Indication: Vitamin supplementation
     Dosage: 10 MILLIGRAM, MONTHLY
     Dates: start: 202005
  15. RIFAXIMIN [Concomitant]
     Active Substance: RIFAXIMIN
     Indication: Illness
     Dosage: 550 MILLIGRAM, BID
     Dates: start: 202005
  16. PERINDOPRIL [Concomitant]
     Active Substance: PERINDOPRIL
     Indication: Hypertension
     Dosage: 4 MILLIGRAM, QD
     Dates: start: 20231214
  17. VENOFER [Concomitant]
     Active Substance: IRON SUCROSE
     Indication: Anaemia
     Dosage: 300 MILLIGRAM, QD
     Dates: start: 202406, end: 202406
  18. VENOFER [Concomitant]
     Active Substance: IRON SUCROSE
     Dosage: 300 MILLIGRAM, QD
     Dates: start: 20240320, end: 20240320

REACTIONS (7)
  - Arteriovenous fistula thrombosis [Recovered/Resolved]
  - Spontaneous haematoma [Recovered/Resolved]
  - Complication associated with device [Recovered/Resolved]
  - Eczema [Not Recovered/Not Resolved]
  - Fistula [Not Recovered/Not Resolved]
  - Osteoporosis [Not Recovered/Not Resolved]
  - Urinary tract infection [Recovered/Resolved]

NARRATIVE: CASE EVENT DATE: 20231201
